FAERS Safety Report 21511356 (Version 2)
Quarter: 2022Q4

REPORT INFORMATION
  Report Type: Spontaneous
  Country: FR (occurrence: FR)
  Receive Date: 20221027
  Receipt Date: 20221108
  Transmission Date: 20230112
  Serious: Yes (Hospitalization)
  Sender: FDA-Public Use
  Company Number: FR-SUN PHARMACEUTICAL INDUSTRIES LTD-2022RR-360722

PATIENT
  Age: 46 Year
  Sex: Male
  Weight: 77 kg

DRUGS (3)
  1. PAROXETINE [Suspect]
     Active Substance: PAROXETINE
     Indication: Intentional overdose
     Dosage: 560 MILLIGRAM, UNK
     Route: 048
     Dates: start: 20220920, end: 20220920
  2. ZOPICLONE [Suspect]
     Active Substance: ZOPICLONE
     Indication: Intentional overdose
     Dosage: 52.5 MILLIGRAM, UNK
     Route: 048
     Dates: start: 20220920, end: 20220920
  3. PROPRANOLOL [Suspect]
     Active Substance: PROPRANOLOL HYDROCHLORIDE
     Indication: Intentional overdose
     Dosage: 800 MILLIGRAM, UNK
     Route: 048
     Dates: start: 20220920, end: 20220920

REACTIONS (3)
  - Somnolence [Recovered/Resolved]
  - Bradycardia [Recovered/Resolved]
  - Poisoning deliberate [Recovered/Resolved]

NARRATIVE: CASE EVENT DATE: 20220920
